FAERS Safety Report 18414557 (Version 1)
Quarter: 2020Q4

REPORT INFORMATION
  Report Type: Spontaneous
  Country: US (occurrence: US)
  Receive Date: 20201022
  Receipt Date: 20201022
  Transmission Date: 20210114
  Serious: Yes (Hospitalization, Other)
  Sender: FDA-Public Use
  Company Number: US-HIKMA PHARMACEUTICALS USA INC.-US-H14001-20-52366

PATIENT
  Age: 17 Year
  Sex: Female

DRUGS (7)
  1. IFOSFAMIDE. [Suspect]
     Active Substance: IFOSFAMIDE
     Indication: HEPATOSPLENIC T-CELL LYMPHOMA
     Dosage: UNKNOWN
     Route: 065
  2. PRALATREXATE [Suspect]
     Active Substance: PRALATREXATE
     Indication: HEPATOSPLENIC T-CELL LYMPHOMA
     Route: 065
  3. CARBOPLATIN. [Suspect]
     Active Substance: CARBOPLATIN
     Indication: HEPATOSPLENIC T-CELL LYMPHOMA
     Dosage: UNKNOWN
     Route: 065
  4. CYCLOPHOSPHAMIDE. [Suspect]
     Active Substance: CYCLOPHOSPHAMIDE
     Indication: HEPATOSPLENIC T-CELL LYMPHOMA
     Dosage: UNKNOWN
     Route: 065
  5. DOXORUBICIN [Suspect]
     Active Substance: DOXORUBICIN
     Indication: HEPATOSPLENIC T-CELL LYMPHOMA
     Dosage: UNKNOWN
     Route: 065
  6. PREDNISONE. [Suspect]
     Active Substance: PREDNISONE
     Indication: HEPATOSPLENIC T-CELL LYMPHOMA
     Dosage: UNKNOWN
     Route: 065
  7. ETOPOSIDE. [Suspect]
     Active Substance: ETOPOSIDE
     Indication: HEPATOSPLENIC T-CELL LYMPHOMA
     Dosage: UNKNOWN
     Route: 065

REACTIONS (2)
  - Mucosal inflammation [Unknown]
  - Neutropenia [Unknown]
